FAERS Safety Report 7309502-1 (Version None)
Quarter: 2011Q1

REPORT INFORMATION
  Report Type: 
  Country: None (occurrence: None)
  Receive Date: 20110223
  Receipt Date: 20110215
  Transmission Date: 20110831
  Serious: Yes (Hospitalization)
  Sender: FDA-Public Use
  Company Number: DE-B.I. PHARMACEUTICALS,INC./RIDGEFIELD-2011-DE-00495DE

PATIENT
  Sex: Female
  Weight: 97 kg

DRUGS (4)
  1. BLIND (BIBF 1120) [Suspect]
     Dosage: 400 MG
     Route: 048
     Dates: start: 20110125
  2. CARBOPLATIN [Suspect]
     Indication: OVARIAN CANCER
     Dosage: STRENGTH: 3-WEEKLY; TOTAL DOSE: AUC 5
     Route: 042
     Dates: start: 20110106
  3. BLIND (BIBF 1120) [Suspect]
     Indication: OVARIAN CANCER
     Dosage: 400 MG
     Route: 048
     Dates: start: 20110107, end: 20110117
  4. PACLITAXEL [Suspect]
     Indication: OVARIAN CANCER
     Dosage: 175 MG
     Route: 042
     Dates: start: 20110106

REACTIONS (1)
  - PYELONEPHRITIS [None]
